FAERS Safety Report 8486900-4 (Version None)
Quarter: 2012Q3

REPORT INFORMATION
  Report Type: 
  Country: None (occurrence: None)
  Receive Date: 20120704
  Receipt Date: 20120628
  Transmission Date: 20120928
  Serious: Yes (Death)
  Sender: FDA-Public Use
  Company Number: JP-ELI_LILLY_AND_COMPANY-JP201112004334

PATIENT
  Sex: Female
  Weight: 42.6 kg

DRUGS (15)
  1. HYDROXOCOBALAMIN ACETATE [Concomitant]
     Dosage: 1 MG, UNK
     Route: 030
     Dates: start: 20111118
  2. EMEND [Concomitant]
     Indication: PROPHYLAXIS OF NAUSEA AND VOMITING
     Dosage: 125 MG, QD
     Route: 048
     Dates: start: 20111130, end: 20111130
  3. FUROSEMIDE [Concomitant]
     Dosage: 20 MG, QD
     Dates: start: 20111130, end: 20111130
  4. GLYCYRON [Concomitant]
     Indication: HEPATIC FUNCTION ABNORMAL
     Dosage: 2 DF, TID
     Route: 048
     Dates: start: 20111201
  5. BUPRENORPHINE HCL [Concomitant]
     Indication: PAIN
     Dosage: UNK
     Dates: start: 20111207, end: 20111207
  6. MIDAZOLAM HCL [Concomitant]
     Indication: PAIN
     Dosage: UNK
     Dates: start: 20111207, end: 20111207
  7. PANVITAN [Concomitant]
     Dosage: 1 G, UNK
     Route: 048
     Dates: start: 20111118, end: 20111206
  8. MS CONTIN [Concomitant]
     Indication: PAIN
     Dosage: 20 MG, BID
     Route: 048
     Dates: start: 20111130, end: 20111206
  9. ALIMTA [Suspect]
     Indication: LUNG ADENOCARCINOMA STAGE IV
     Dosage: 500 MG/M2, UNK
     Route: 042
     Dates: start: 20111130, end: 20111130
  10. CISPLATIN [Concomitant]
     Indication: LUNG ADENOCARCINOMA STAGE IV
     Dosage: 75 MG/M2, UNK
     Route: 042
     Dates: start: 20111130, end: 20111130
  11. DEXAMETHASONE SODIUM PHOSPHATE [Concomitant]
     Indication: PROPHYLAXIS OF NAUSEA AND VOMITING
     Dosage: 9.9 MG, QD
     Dates: start: 20111130, end: 20111130
  12. EMEND [Concomitant]
     Dosage: 80 MG, QD
     Route: 048
     Dates: start: 20111201, end: 20111202
  13. ZOMETA [Concomitant]
     Indication: LUNG ADENOCARCINOMA STAGE IV
     Dosage: 4 MG, UNK
     Route: 042
     Dates: start: 20111201, end: 20111201
  14. ALOXI [Concomitant]
     Indication: PROPHYLAXIS OF NAUSEA AND VOMITING
     Dosage: 0.75 MG, QD
     Dates: start: 20111130, end: 20111130
  15. MORPHINE HYDROCHLORIDE [Concomitant]
     Indication: PAIN
     Dosage: UNK
     Dates: start: 20111204

REACTIONS (4)
  - INTERSTITIAL LUNG DISEASE [None]
  - DISSEMINATED INTRAVASCULAR COAGULATION [None]
  - ACUTE LUNG INJURY [None]
  - ACUTE RESPIRATORY DISTRESS SYNDROME [None]
